FAERS Safety Report 6346076-6 (Version None)
Quarter: 2009Q3

REPORT INFORMATION
  Report Type: 
  Country: None (occurrence: None)
  Receive Date: 20090821
  Receipt Date: 20090625
  Transmission Date: 20100115
  Serious: No
  Sender: FDA-Public Use
  Company Number: 8048229

PATIENT
  Age: 65 Year
  Sex: Male
  Weight: 110.91 kg

DRUGS (6)
  1. CIMZIA [Suspect]
     Indication: CROHN'S DISEASE
     Dosage: 400 MG 1/2W SC
     Route: 058
     Dates: start: 20090611
  2. ALLOPURINOL [Concomitant]
  3. PENTASA [Concomitant]
  4. ZANTAC [Concomitant]
  5. PEPCID [Concomitant]
  6. OMEPRAZOLE [Concomitant]

REACTIONS (4)
  - HOT FLUSH [None]
  - INJECTION SITE REACTION [None]
  - MALAISE [None]
  - PYREXIA [None]
